FAERS Safety Report 8200090-4 (Version None)
Quarter: 2012Q1

REPORT INFORMATION
  Report Type: 
  Country: None (occurrence: None)
  Receive Date: 20120309
  Receipt Date: 20120309
  Transmission Date: 20120608
  Serious: No
  Sender: FDA-Public Use
  Company Number: None

PATIENT
  Age: 29 Year
  Sex: Female

DRUGS (7)
  1. ZYPREXA [Concomitant]
  2. PREDNISONE [Concomitant]
  3. PHENERGAN [Concomitant]
  4. ESCITALOPRAM [Suspect]
     Dates: start: 20090422, end: 20090623
  5. ATIVAN [Concomitant]
  6. ACTIGALL [Concomitant]
  7. IMURAN [Concomitant]

REACTIONS (21)
  - LIVER DISORDER [None]
  - ENCEPHALOPATHY [None]
  - AUTOIMMUNE HEPATITIS [None]
  - ANXIETY [None]
  - JAUNDICE [None]
  - FATIGUE [None]
  - INSOMNIA [None]
  - LIVER INJURY [None]
  - NAUSEA [None]
  - CRYING [None]
  - AFFECT LABILITY [None]
  - ALANINE AMINOTRANSFERASE INCREASED [None]
  - CHROMATURIA [None]
  - BLOOD BILIRUBIN INCREASED [None]
  - INTERNATIONAL NORMALISED RATIO INCREASED [None]
  - DYSPNOEA [None]
  - ASPARTATE AMINOTRANSFERASE INCREASED [None]
  - PRURITUS [None]
  - RASH [None]
  - AGITATION [None]
  - HALLUCINATION [None]
